FAERS Safety Report 7535193-0 (Version None)
Quarter: 2011Q2

REPORT INFORMATION
  Report Type: 
  Country: None (occurrence: None)
  Receive Date: 20110609
  Receipt Date: 20090228
  Transmission Date: 20111010
  Serious: Yes (Death, Hospitalization)
  Sender: FDA-Public Use
  Company Number: PHHY2009BR07436

PATIENT
  Age: 68 Year
  Sex: Male

DRUGS (2)
  1. FORMOTEROL FUMARATE [Suspect]
     Indication: COUGH
  2. FORMOTEROL FUMARATE [Suspect]
     Indication: DYSPNOEA

REACTIONS (4)
  - METASTASIS [None]
  - METASTASES TO LIVER [None]
  - NEOPLASM MALIGNANT [None]
  - METASTASES TO LUNG [None]
